FAERS Safety Report 4559078-7 (Version None)
Quarter: 2005Q1

REPORT INFORMATION
  Report Type: 
  Country: None (occurrence: None)
  Receive Date: 20050121
  Receipt Date: 20050121
  Transmission Date: 20050727
  Serious: No
  Sender: FDA-Public Use
  Company Number: None

PATIENT
  Sex: Female
  Weight: 54.1 kg

DRUGS (9)
  1. ZOMETA [Suspect]
     Indication: METASTASES TO BONE
     Dosage: 4MG   Q MONTH   INTRAVENOU
     Route: 042
     Dates: start: 20031001, end: 20041201
  2. AREDIA [Suspect]
     Indication: METASTASES TO BONE
     Dosage: 90MG    Q MONTH    INTRAVENOU
     Route: 042
     Dates: start: 19981201, end: 20030901
  3. FLEXERIL [Concomitant]
  4. VIOXX [Concomitant]
  5. FASLODEX [Concomitant]
  6. CLARITIN-D [Concomitant]
  7. NAPROSYN [Concomitant]
  8. VICODIN [Concomitant]
  9. EFFEXOR [Concomitant]

REACTIONS (4)
  - METASTATIC NEOPLASM [None]
  - OSTEONECROSIS [None]
  - PAIN IN JAW [None]
  - TOOTH DISORDER [None]
